FAERS Safety Report 17351549 (Version 2)
Quarter: 2020Q1

REPORT INFORMATION
  Report Type: Spontaneous
  Country: US (occurrence: US)
  Receive Date: 20200130
  Receipt Date: 20200211
  Transmission Date: 20200409
  Serious: Yes (Hospitalization)
  Sender: FDA-Public Use
  Company Number: US-ACTELION-A-US2020-200998

PATIENT
  Sex: Male

DRUGS (6)
  1. ZANTAC [Concomitant]
     Active Substance: RANITIDINE HYDROCHLORIDE
     Dosage: 37.5 MG, BID/PER TUBE
     Dates: start: 20200102
  2. TRACLEER [Suspect]
     Active Substance: BOSENTAN
     Indication: PULMONARY HYPERTENSION
     Dosage: 6.25 MG/ML; 15.6 MG JTUBE Q 12 HRS
     Route: 048
     Dates: start: 20190730
  3. FERROUS SULFATE ANHYDROUS. [Concomitant]
     Active Substance: FERROUS SULFATE ANHYDROUS
     Dosage: 15 MG, QD/J-TUBE
     Dates: start: 20190809
  4. SYNTHROID [Concomitant]
     Active Substance: LEVOTHYROXINE SODIUM
     Dosage: 44 MCG, QD/J TUBE
     Dates: start: 20191021
  5. CHILDREN MULTIVITAMINS [Concomitant]
     Dosage: UNK
  6. SILDENAFIL. [Concomitant]
     Active Substance: SILDENAFIL
     Dosage: 15 MG, Q6HRS/PER TUBE

REACTIONS (1)
  - Hospitalisation [Unknown]
